FAERS Safety Report 4677642-1 (Version None)
Quarter: 2005Q2

REPORT INFORMATION
  Report Type: 
  Country: None (occurrence: None)
  Receive Date: 20050531
  Receipt Date: 20050517
  Transmission Date: 20051028
  Serious: Yes (Other)
  Sender: FDA-Public Use
  Company Number: JP-ROCHE-405325

PATIENT
  Age: 88 Year
  Sex: Male

DRUGS (6)
  1. TAMIFLU [Suspect]
     Route: 048
     Dates: start: 20050416, end: 20050419
  2. GASTER (JAPAN) [Concomitant]
     Route: 048
     Dates: start: 20050416, end: 20050422
  3. CEFTRIAXONE SODIUM [Concomitant]
     Dates: start: 20050416, end: 20050417
  4. CALONAL [Concomitant]
  5. BANAN [Concomitant]
     Dates: start: 20050419, end: 20050421
  6. ZITHROMAC [Concomitant]
     Route: 048
     Dates: start: 20050416, end: 20050418

REACTIONS (4)
  - ASPARTATE AMINOTRANSFERASE INCREASED [None]
  - BLOOD CREATINE PHOSPHOKINASE INCREASED [None]
  - CHROMATURIA [None]
  - RHABDOMYOLYSIS [None]
